FAERS Safety Report 14018626 (Version 1)
Quarter: 2017Q3

REPORT INFORMATION
  Report Type: Spontaneous
  Country: US (occurrence: US)
  Receive Date: 20170928
  Receipt Date: 20170928
  Transmission Date: 20171128
  Serious: No
  Sender: FDA-Public Use
  Company Number: US-CELGENEUS-USA-20170907208

PATIENT
  Sex: Male
  Weight: 115.32 kg

DRUGS (2)
  1. OTEZLA [Suspect]
     Active Substance: APREMILAST
     Indication: JUVENILE PSORIATIC ARTHRITIS
     Dosage: 60 MILLIGRAM
     Route: 048
     Dates: start: 201504
  2. OTEZLA [Suspect]
     Active Substance: APREMILAST
     Indication: PSORIASIS

REACTIONS (1)
  - Depression [Unknown]
